FAERS Safety Report 8184266-0 (Version None)
Quarter: 2012Q1

REPORT INFORMATION
  Report Type: 
  Country: None (occurrence: None)
  Receive Date: 20120305
  Receipt Date: 20120302
  Transmission Date: 20120608
  Serious: Yes (Death)
  Sender: FDA-Public Use
  Company Number: US-ROXANE LABORATORIES, INC.-2012-RO-00759RO

PATIENT
  Age: 25 Year
  Sex: Male

DRUGS (5)
  1. OXYMORPHONE [Suspect]
  2. METHADON HCL TAB [Suspect]
  3. OXYCODONE HCL [Suspect]
  4. HYDROCODONE BITARTRATE [Suspect]
  5. SUBOXONE [Suspect]

REACTIONS (1)
  - MULTIPLE DRUG OVERDOSE [None]
